FAERS Safety Report 8617266-4 (Version None)
Quarter: 2012Q3

REPORT INFORMATION
  Report Type: 
  Country: None (occurrence: None)
  Receive Date: 20120823
  Receipt Date: 20120817
  Transmission Date: 20120928
  Serious: No
  Sender: FDA-Public Use
  Company Number: US-B.I. PHARMACEUTICALS,INC./RIDGEFIELD-2012-BP-19958BP

PATIENT
  Sex: Female
  Weight: 88 kg

DRUGS (14)
  1. AMBIEN [Concomitant]
     Indication: SLEEP DISORDER
     Dosage: 10 MG
     Route: 048
  2. OXYCODONE HCL [Concomitant]
  3. SEROQUEL [Concomitant]
     Indication: SLEEP DISORDER
     Dosage: 100 MG
     Route: 048
  4. DICYCLOMINE [Concomitant]
     Indication: ABDOMINAL PAIN LOWER
  5. DULCOLAX [Suspect]
     Indication: BOWEL MOVEMENT IRREGULARITY
     Dosage: 200 MG
     Route: 048
     Dates: start: 20100101
  6. OXYCODONE HCL [Concomitant]
  7. ZOLOFT [Concomitant]
     Indication: DEPRESSION
     Dosage: 100 MG
     Route: 048
  8. DICYCLOMINE [Concomitant]
     Indication: GASTROINTESTINAL PAIN
     Dosage: 30 MG
     Route: 048
     Dates: start: 20100101
  9. SIMVASTATIN [Concomitant]
     Indication: BLOOD CHOLESTEROL INCREASED
     Dosage: 40 MG
     Route: 048
     Dates: start: 20100101
  10. SPIRIVA [Suspect]
     Route: 048
     Dates: start: 20120817, end: 20120817
  11. OXYCODONE HCL [Concomitant]
     Indication: ARTHRALGIA
     Dosage: 15 MG
     Route: 048
  12. OXYCODONE HCL [Concomitant]
     Indication: BACK PAIN
  13. SPIRIVA [Suspect]
     Indication: CHRONIC OBSTRUCTIVE PULMONARY DISEASE
     Dosage: 18 MCG
     Route: 055
     Dates: start: 20110101
  14. WELLBUTRIN [Concomitant]
     Indication: DEPRESSION
     Dosage: 100 MG
     Route: 048

REACTIONS (4)
  - WEIGHT INCREASED [None]
  - DYSPNOEA [None]
  - CHEST PAIN [None]
  - INCORRECT ROUTE OF DRUG ADMINISTRATION [None]
